FAERS Safety Report 8343862 (Version 6)
Quarter: 2013Q1

REPORT INFORMATION
  Report Type: Spontaneous
  Country: US (occurrence: US)
  Receive Date: 20120119
  Receipt Date: 20130116
  Transmission Date: 20140127
  Serious: Yes (Hospitalization, Other)
  Sender: FDA-Public Use
  Company Number: US-009507513-1201USA02282

PATIENT
  Sex: 0

DRUGS (8)
  1. FOSAMAX [Suspect]
     Indication: OSTEOPENIA
     Dosage: 10 MG, UNK
     Route: 048
     Dates: start: 200109, end: 200112
  2. FOSAMAX [Suspect]
     Indication: OSTEOPOROSIS
     Dosage: 70 MG, UNK
     Route: 048
     Dates: start: 200112, end: 200208
  3. FOSAMAX [Suspect]
     Dosage: 70 MG, QW
     Route: 048
     Dates: start: 200507, end: 200609
  4. FOSAMAX PLUS D [Suspect]
     Indication: OSTEOPENIA
     Dosage: 70 MG, UNK
     Route: 048
     Dates: start: 200610, end: 200903
  5. ALENDRONATE SODIUM [Suspect]
     Indication: OSTEOPENIA
     Dosage: 70 MG, UNK
     Route: 048
     Dates: start: 200904, end: 201101
  6. ACTONEL [Suspect]
     Indication: OSTEOPENIA
     Dosage: 35 MG, QW
     Route: 048
     Dates: start: 200208, end: 200506
  7. SYNTHROID [Concomitant]
     Dosage: 112-125
  8. CALCIUM (UNSPECIFIED) (+) VITAMIN D (UNSPECIFIED) [Concomitant]
     Dosage: 1000 + VITAMIN D

REACTIONS (66)
  - Open reduction of fracture [Unknown]
  - Skin cancer [Unknown]
  - Anaemia postoperative [Unknown]
  - Deafness [Unknown]
  - Skin neoplasm excision [Unknown]
  - Cataract operation [Unknown]
  - Bladder operation [Unknown]
  - Femur fracture [Unknown]
  - Low turnover osteopathy [Unknown]
  - Fall [Unknown]
  - Hand fracture [Unknown]
  - Obsessive-compulsive disorder [Not Recovered/Not Resolved]
  - Arthritis [Not Recovered/Not Resolved]
  - Intervertebral disc degeneration [Unknown]
  - Incontinence [Recovered/Resolved]
  - Nipple disorder [Unknown]
  - Ulcer [Unknown]
  - Insomnia [Not Recovered/Not Resolved]
  - Fibrocystic breast disease [Unknown]
  - Joint injury [Unknown]
  - Fall [Unknown]
  - Spinal column injury [Unknown]
  - Arthritis [Not Recovered/Not Resolved]
  - Joint injury [Unknown]
  - Neuropathy peripheral [Unknown]
  - Pharyngitis [Unknown]
  - Nasal congestion [Unknown]
  - Productive cough [Unknown]
  - Radicular pain [Unknown]
  - Balance disorder [Unknown]
  - Fall [Unknown]
  - Sleep disorder [Not Recovered/Not Resolved]
  - Lumbar vertebral fracture [Unknown]
  - Anxiety [Unknown]
  - Bronchitis [Unknown]
  - Pleurisy [Unknown]
  - Asthma [Unknown]
  - Bronchial hyperreactivity [Unknown]
  - Furuncle [Unknown]
  - Acute sinusitis [Unknown]
  - Hiatus hernia [Unknown]
  - Oesophageal disorder [Unknown]
  - Sinus headache [Unknown]
  - Unevaluable event [Unknown]
  - Cough [Unknown]
  - Herpes zoster [Unknown]
  - Hypercholesterolaemia [Unknown]
  - Vitamin D deficiency [Unknown]
  - Impaired gastric emptying [Unknown]
  - Gastroenteritis Escherichia coli [Unknown]
  - Bunion [Unknown]
  - Cataract [Unknown]
  - Haemorrhoids [Unknown]
  - Road traffic accident [Unknown]
  - Intervertebral disc degeneration [Unknown]
  - Mammogram abnormal [Unknown]
  - Drug hypersensitivity [Unknown]
  - Pain in extremity [Unknown]
  - Neck pain [Not Recovered/Not Resolved]
  - Gastrooesophageal reflux disease [Not Recovered/Not Resolved]
  - Headache [Unknown]
  - Pruritus [Not Recovered/Not Resolved]
  - Drug ineffective [Unknown]
  - Hyperlipidaemia [Unknown]
  - Spinal compression fracture [Unknown]
  - Osteoarthritis [Not Recovered/Not Resolved]
